FAERS Safety Report 5102515-X (Version None)
Quarter: 2006Q3

REPORT INFORMATION
  Report Type: 
  Country: None (occurrence: None)
  Receive Date: 20060907
  Receipt Date: 20060823
  Transmission Date: 20061208
  Serious: Yes (Other)
  Sender: FDA-Public Use
  Company Number: DSA_26891_2005

PATIENT
  Age: 30 Year
  Sex: Female

DRUGS (3)
  1. LORAZEPAM [Suspect]
     Indication: ANXIETY
     Dosage: 2.5 MG Q DAY SL
     Route: 060
  2. LORAZEPAM [Suspect]
     Indication: DEPRESSION
     Dosage: 2.5 MG Q DAY SL
     Route: 060
  3. XANAX [Suspect]
     Indication: DEPRESSION
     Dosage: 1 DF BID PO
     Route: 048

REACTIONS (2)
  - ABORTION SPONTANEOUS [None]
  - DRUG EXPOSURE DURING PREGNANCY [None]
